FAERS Safety Report 26217654 (Version 1)
Quarter: 2025Q4

REPORT INFORMATION
  Report Type: Spontaneous
  Country: AU (occurrence: AU)
  Receive Date: 20251231
  Receipt Date: 20251231
  Transmission Date: 20260117
  Serious: Yes (Other)
  Sender: STRIDES
  Company Number: None

PATIENT
  Age: 53 Year
  Sex: Female

DRUGS (22)
  1. PREDNISOLONE [Suspect]
     Active Substance: PREDNISOLONE
     Indication: Oral lichen planus
     Dosage: UNK
     Route: 048
  2. PREDNISOLONE [Suspect]
     Active Substance: PREDNISOLONE
     Indication: Lichen planus
  3. METHOTREXATE [Suspect]
     Active Substance: METHOTREXATE
     Indication: Oral lichen planus
     Dosage: UNK
     Route: 065
  4. METHOTREXATE [Suspect]
     Active Substance: METHOTREXATE
     Indication: Lichen planus
  5. MYCOPHENOLATE MOFETIL [Suspect]
     Active Substance: MYCOPHENOLATE MOFETIL
     Indication: Oral lichen planus
     Dosage: UNK
     Route: 065
  6. MYCOPHENOLATE MOFETIL [Suspect]
     Active Substance: MYCOPHENOLATE MOFETIL
     Indication: Lichen planus
  7. HYDROXYCHLOROQUINE [Suspect]
     Active Substance: HYDROXYCHLOROQUINE
     Indication: Oral lichen planus
     Dosage: UNK
     Route: 065
  8. HYDROXYCHLOROQUINE [Suspect]
     Active Substance: HYDROXYCHLOROQUINE
     Indication: Lichen planus
  9. ADALIMUMAB [Suspect]
     Active Substance: ADALIMUMAB
     Indication: Oral lichen planus
     Dosage: UNK
     Route: 065
  10. ADALIMUMAB [Suspect]
     Active Substance: ADALIMUMAB
     Indication: Lichen planus
  11. CYCLOSPORINE [Suspect]
     Active Substance: CYCLOSPORINE
     Indication: Oral lichen planus
     Dosage: UNK
     Route: 065
  12. CYCLOSPORINE [Suspect]
     Active Substance: CYCLOSPORINE
     Indication: Lichen planus
  13. RITUXIMAB [Suspect]
     Active Substance: RITUXIMAB
     Indication: Oral lichen planus
     Dosage: UNK
     Route: 065
  14. RITUXIMAB [Suspect]
     Active Substance: RITUXIMAB
     Indication: Lichen planus
  15. EVEROLIMUS [Suspect]
     Active Substance: EVEROLIMUS
     Indication: Oral lichen planus
     Dosage: UNK
     Route: 065
  16. EVEROLIMUS [Suspect]
     Active Substance: EVEROLIMUS
     Indication: Lichen planus
  17. USTEKINUMAB [Suspect]
     Active Substance: USTEKINUMAB
     Indication: Oral lichen planus
     Dosage: UNK
     Route: 065
  18. USTEKINUMAB [Suspect]
     Active Substance: USTEKINUMAB
     Indication: Lichen planus
  19. GOLIMUMAB [Suspect]
     Active Substance: GOLIMUMAB
     Indication: Oral lichen planus
     Dosage: UNK
     Route: 065
  20. GOLIMUMAB [Suspect]
     Active Substance: GOLIMUMAB
     Indication: Lichen planus
  21. THALIDOMIDE [Suspect]
     Active Substance: THALIDOMIDE
     Indication: Oral lichen planus
     Dosage: UNK
     Route: 065
  22. THALIDOMIDE [Suspect]
     Active Substance: THALIDOMIDE
     Indication: Lichen planus

REACTIONS (5)
  - Poikiloderma [Unknown]
  - Osteoporotic fracture [Unknown]
  - Osteoporosis [Unknown]
  - Therapy non-responder [Unknown]
  - Off label use [Unknown]
